FAERS Safety Report 18958778 (Version 2)
Quarter: 2022Q1

REPORT INFORMATION
  Report Type: Spontaneous
  Country: US (occurrence: US)
  Receive Date: 20210302
  Receipt Date: 20220331
  Transmission Date: 20220423
  Serious: Yes (Other)
  Sender: FDA-Public Use
  Company Number: US-GLAXOSMITHKLINE-US2021GSK052074

PATIENT
  Sex: Male

DRUGS (21)
  1. ZANTAC [Suspect]
     Active Substance: RANITIDINE HYDROCHLORIDE
     Indication: Gastric bypass
     Dosage: QD, BOTH
     Route: 065
     Dates: start: 201003, end: 201907
  2. ZANTAC [Suspect]
     Active Substance: RANITIDINE HYDROCHLORIDE
     Dosage: UNKNOWN AT THIS TIME BOTH
     Route: 065
     Dates: start: 201003, end: 201907
  3. ZANTAC [Suspect]
     Active Substance: RANITIDINE HYDROCHLORIDE
     Dosage: UNK
  4. ZANTAC [Suspect]
     Active Substance: RANITIDINE HYDROCHLORIDE
     Indication: Gastric bypass
     Dosage: QD, BOTH
     Route: 065
     Dates: start: 201003, end: 201907
  5. ZANTAC [Suspect]
     Active Substance: RANITIDINE HYDROCHLORIDE
     Dosage: UNKNOWN AT THIS TIME BOTH
     Route: 065
     Dates: start: 201003, end: 201907
  6. ZANTAC [Suspect]
     Active Substance: RANITIDINE HYDROCHLORIDE
     Dosage: UNK
  7. ZANTAC [Suspect]
     Active Substance: RANITIDINE HYDROCHLORIDE
     Indication: Gastric bypass
     Dosage: QD, BOTH
     Route: 065
     Dates: start: 201003, end: 201907
  8. ZANTAC [Suspect]
     Active Substance: RANITIDINE HYDROCHLORIDE
     Dosage: UNKNOWN AT THIS TIME BOTH
     Route: 065
     Dates: start: 201003, end: 201907
  9. ZANTAC [Suspect]
     Active Substance: RANITIDINE HYDROCHLORIDE
     Dosage: UNK
  10. RANITIDINE [Suspect]
     Active Substance: RANITIDINE
     Indication: Gastric bypass
     Dosage: QD, BOTH
     Route: 065
     Dates: start: 201003, end: 201907
  11. RANITIDINE [Suspect]
     Active Substance: RANITIDINE
     Dosage: UNKNOWN AT THIS TIME BOTH
     Route: 065
     Dates: start: 201003, end: 201907
  12. RANITIDINE [Suspect]
     Active Substance: RANITIDINE
     Dosage: UNKNOWN AT THIS TIME BOTH
     Route: 065
     Dates: start: 201003, end: 201907
  13. RANITIDINE [Suspect]
     Active Substance: RANITIDINE
     Indication: Gastric bypass
     Dosage: QD, BOTH
     Route: 065
     Dates: start: 201003, end: 201907
  14. RANITIDINE [Suspect]
     Active Substance: RANITIDINE
     Dosage: UNKNOWN AT THIS TIME BOTH
     Route: 065
     Dates: start: 201003, end: 201907
  15. RANITIDINE [Suspect]
     Active Substance: RANITIDINE
     Dosage: UNK
  16. RANITIDINE [Suspect]
     Active Substance: RANITIDINE
     Indication: Gastric bypass
     Dosage: QD, BOTH
     Route: 065
     Dates: start: 201003, end: 201907
  17. RANITIDINE [Suspect]
     Active Substance: RANITIDINE
     Dosage: UNKNOWN AT THIS TIME BOTH
     Route: 065
     Dates: start: 201003, end: 201907
  18. RANITIDINE [Suspect]
     Active Substance: RANITIDINE
     Dosage: UNK
  19. RANITIDINE [Suspect]
     Active Substance: RANITIDINE
     Indication: Gastric bypass
     Dosage: UNK, QD BOTH
     Route: 065
     Dates: start: 201003, end: 201907
  20. RANITIDINE [Suspect]
     Active Substance: RANITIDINE
     Dosage: UNKNOWN AT THIS TIME BOTH
     Route: 065
     Dates: start: 201003, end: 201907
  21. RANITIDINE [Suspect]
     Active Substance: RANITIDINE
     Dosage: UNK

REACTIONS (1)
  - Colon cancer [Unknown]
